FAERS Safety Report 22000372 (Version 5)
Quarter: 2024Q1

REPORT INFORMATION
  Report Type: Spontaneous
  Country: US (occurrence: US)
  Receive Date: 20230216
  Receipt Date: 20240105
  Transmission Date: 20240410
  Serious: No
  Sender: FDA-Public Use
  Company Number: US-PFIZER INC-PV202300029894

PATIENT
  Age: 57 Year
  Sex: Female

DRUGS (13)
  1. IBRANCE [Suspect]
     Active Substance: PALBOCICLIB
     Indication: Breast cancer female
     Dosage: 1 TABLET DAILY ON DAYS 1-21 OF A 28 DAY TREATMENT CYCLE
     Route: 048
     Dates: start: 20230120
  2. HYDROXYZINE HYDROCHLORIDE [Concomitant]
     Active Substance: HYDROXYZINE HYDROCHLORIDE
  3. VIT C W/ZINC [Concomitant]
  4. ZOLEDRONIC [Concomitant]
     Active Substance: ZOLEDRONIC ACID
     Dosage: 4 MG/5 ML
  5. ANASTROZOLE [Concomitant]
     Active Substance: ANASTROZOLE
  6. LEVOTHYROXINE [Concomitant]
     Active Substance: LEVOTHYROXINE
  7. ACETAMINOPHEN [Concomitant]
     Active Substance: ACETAMINOPHEN
     Dosage: UNK
  8. AMITRIPTYLINE [Concomitant]
     Active Substance: AMITRIPTYLINE
     Dosage: UNK
  9. BROCCOLI BIOS [Concomitant]
     Dosage: UNK
  10. GABAPENTIN [Concomitant]
     Active Substance: GABAPENTIN
     Dosage: 100 MG
  11. HYDROCORT [HYDROCORTISONE] [Concomitant]
     Dosage: UNK
  12. MINERALS\VITAMINS [Concomitant]
     Active Substance: MINERALS\VITAMINS
     Dosage: 50+
  13. MINERALS\VITAMINS [Concomitant]
     Active Substance: MINERALS\VITAMINS

REACTIONS (10)
  - Gastrointestinal sounds abnormal [Recovered/Resolved]
  - Insomnia [Not Recovered/Not Resolved]
  - Middle insomnia [Not Recovered/Not Resolved]
  - Terminal insomnia [Not Recovered/Not Resolved]
  - Fatigue [Unknown]
  - Initial insomnia [Not Recovered/Not Resolved]
  - Arthralgia [Unknown]
  - Psoriasis [Unknown]
  - Mass [Unknown]
  - Skin lesion [Not Recovered/Not Resolved]
